FAERS Safety Report 6896973-8 (Version None)
Quarter: 2010Q3

REPORT INFORMATION
  Report Type: 
  Country: None (occurrence: None)
  Receive Date: 20100802
  Receipt Date: 20070522
  Transmission Date: 20110219
  Serious: No
  Sender: FDA-Public Use
  Company Number: US-PFIZER INC-2006125996

PATIENT
  Sex: Female
  Weight: 96.16 kg

DRUGS (3)
  1. LYRICA [Suspect]
     Indication: BACK PAIN
     Route: 048
  2. LYRICA [Suspect]
     Indication: NEURALGIA
  3. ALL OTHER THERAPEUTIC PRODUCTS [Concomitant]

REACTIONS (1)
  - URINE ODOUR ABNORMAL [None]
